FAERS Safety Report 11640482 (Version 1)
Quarter: 2015Q4

REPORT INFORMATION
  Report Type: Spontaneous
  Country: AU (occurrence: AU)
  Receive Date: 20151019
  Receipt Date: 20151019
  Transmission Date: 20160304
  Serious: No
  Sender: FDA-Public Use
  Company Number: AU-JNJFOC-20151012147

PATIENT
  Sex: Female

DRUGS (1)
  1. DUROGESIC [Suspect]
     Active Substance: FENTANYL
     Indication: PAIN
     Route: 062
     Dates: start: 20151003

REACTIONS (3)
  - Nausea [Recovered/Resolved]
  - Product quality issue [Unknown]
  - Wrong technique in product usage process [Unknown]
